FAERS Safety Report 6989595-1 (Version None)
Quarter: 2010Q3

REPORT INFORMATION
  Report Type: 
  Country: None (occurrence: None)
  Receive Date: 20100916
  Receipt Date: 20100112
  Transmission Date: 20110219
  Serious: Yes (Other)
  Sender: FDA-Public Use
  Company Number: NL-PFIZER INC-2009300483

PATIENT
  Sex: Male

DRUGS (8)
  1. LYRICA [Suspect]
     Indication: NEURALGIA
     Dosage: 150 MG, UNK
     Route: 048
     Dates: start: 20070522, end: 20070529
  2. DICLOFENAC [Concomitant]
     Indication: PAIN
     Dosage: 75 MG, 2X/DAY
     Route: 048
  3. OMEPRAZOLE [Concomitant]
     Dosage: 40 MG, 1X/DAY
     Route: 048
  4. SIMVASTATIN [Concomitant]
     Dosage: 20 MG, 1X/DAY
  5. TOLBUTAMIDE [Concomitant]
     Dosage: 500 MG, 4X/DAY
  6. DILTIAZEM HYDROCHLORIDE [Concomitant]
     Dosage: 120 MG, 1X/DAY
  7. SOTALOL [Concomitant]
     Dosage: 80 MG, 1X/DAY
  8. METFORMIN HYDROCHLORIDE [Concomitant]
     Dosage: 500 MG, 4X/DAY

REACTIONS (4)
  - ATRIAL FIBRILLATION [None]
  - CARPAL TUNNEL DECOMPRESSION [None]
  - PAIN [None]
  - STRESS [None]
